FAERS Safety Report 7584245-8 (Version None)
Quarter: 2011Q2

REPORT INFORMATION
  Report Type: 
  Country: None (occurrence: None)
  Receive Date: 20110630
  Receipt Date: 20110623
  Transmission Date: 20111010
  Serious: Yes (Other)
  Sender: FDA-Public Use
  Company Number: US-ELI_LILLY_AND_COMPANY-US201106007589

PATIENT
  Age: 33 Year
  Sex: Male

DRUGS (2)
  1. CIALIS [Suspect]
  2. VIAGRA [Concomitant]

REACTIONS (2)
  - HAEMATOSPERMIA [None]
  - OFF LABEL USE [None]
